FAERS Safety Report 19820167 (Version 1)
Quarter: 2021Q3

REPORT INFORMATION
  Report Type: Spontaneous
  Country: US (occurrence: US)
  Receive Date: 20210908
  Receipt Date: 20210908
  Transmission Date: 20211014
  Serious: No
  Sender: FDA-Public Use
  Company Number: None

PATIENT
  Sex: Female
  Weight: 72.48 kg

DRUGS (1)
  1. LEVOTHYROXINE 112 MCG [Suspect]
     Active Substance: LEVOTHYROXINE

REACTIONS (2)
  - Abdominal pain [None]
  - Nausea [None]
